FAERS Safety Report 9752024 (Version 1)
Quarter: 2013Q4

REPORT INFORMATION
  Report Type: Spontaneous
  Country: US (occurrence: None)
  Receive Date: 20131211
  Receipt Date: 20131211
  Transmission Date: 20140711
  Serious: Yes (Hospitalization)
  Sender: FDA-Public Use
  Company Number: None

PATIENT
  Age: 62 Year
  Sex: Female
  Weight: 107 kg

DRUGS (1)
  1. HURRICANE SPRAY 20% [Suspect]
     Indication: THROAT IRRITATION
     Dates: start: 20131206, end: 20131206

REACTIONS (2)
  - Hypoxia [None]
  - Methaemoglobinaemia [None]
